FAERS Safety Report 4625462-6 (Version None)
Quarter: 2005Q2

REPORT INFORMATION
  Report Type: 
  Country: None (occurrence: None)
  Receive Date: 20050401
  Receipt Date: 20050318
  Transmission Date: 20051028
  Serious: Yes (Other)
  Sender: FDA-Public Use
  Company Number: FR-BOEHRINGER INGELHEIM PHARMACEUTICALS, INC.-2005-DE-01107GD

PATIENT
  Age: 52 Year
  Sex: Male

DRUGS (7)
  1. NEVIRAPINE [Suspect]
     Indication: HIV INFECTION
  2. LAMIVUDINE [Suspect]
     Indication: HIV INFECTION
  3. ABACAVIR [Suspect]
     Indication: HIV INFECTION
  4. TENOFOVIR [Suspect]
     Indication: HIV INFECTION
  5. LOPINAVIR [Suspect]
     Indication: HIV INFECTION
  6. AMPRENAVIR [Suspect]
     Indication: HIV INFECTION
  7. ENFUVIRTIDE [Suspect]
     Indication: HIV INFECTION

REACTIONS (17)
  - BRONCHIECTASIS [None]
  - COUGH [None]
  - DIARRHOEA [None]
  - DISEASE RECURRENCE [None]
  - DRUG INEFFECTIVE [None]
  - HEPATOMEGALY [None]
  - HYPOKALAEMIA [None]
  - LUNG NEOPLASM [None]
  - MICROSPORIDIA INFECTION [None]
  - OROPHARYNGEAL CANDIDIASIS [None]
  - PARASITE STOOL TEST POSITIVE [None]
  - PNEUMOCYSTIS JIROVECI INFECTION [None]
  - PYREXIA [None]
  - RALES [None]
  - THROMBOCYTOPENIA [None]
  - WEIGHT DECREASED [None]
  - WHITE BLOOD CELL COUNT DECREASED [None]
